FAERS Safety Report 9159869 (Version 1)
Quarter: 2013Q1

REPORT INFORMATION
  Report Type: Spontaneous
  Country: DK (occurrence: None)
  Receive Date: 20130214
  Receipt Date: 20130214
  Transmission Date: 20140127
  Serious: Yes (Hospitalization)
  Sender: FDA-Public Use
  Company Number: 2013MA001067

PATIENT
  Sex: Female

DRUGS (2)
  1. FEVERALL (ACETAMINOPHEN RECTAL SUPPOSITORIES) 650 MG (ALPHARMA) (PARACETAMOL) [Suspect]
     Indication: PRODUCT USED FOR UNKNOWN INDICATION
  2. DESLORATADINE (DESLORATADINE) [Suspect]
     Indication: PRODUCT USED FOR UNKNOWN INDICATION

REACTIONS (2)
  - Pyrexia [None]
  - Rash generalised [None]
